FAERS Safety Report 9186122 (Version 19)
Quarter: 2016Q3

REPORT INFORMATION
  Report Type: Spontaneous
  Country: US (occurrence: US)
  Receive Date: 20130325
  Receipt Date: 20160727
  Transmission Date: 20161109
  Serious: Yes (Death, Hospitalization, Other)
  Sender: FDA-Public Use
  Company Number: US-GLAXOSMITHKLINE-A0975028A

PATIENT
  Age: 72 Year
  Sex: Female

DRUGS (18)
  1. FLOLAN [Suspect]
     Active Substance: EPOPROSTENOL SODIUM
     Indication: PULMONARY ARTERIAL HYPERTENSION
     Dosage: 50 NG/KG/MIN, CONCENTRATION 75000 NG/ML, PUMP RATE 79 ML/DAY (VIAL STRENGTH 1.5)
     Route: 042
     Dates: start: 20030825
  2. FLOLAN [Suspect]
     Active Substance: EPOPROSTENOL SODIUM
     Dosage: UNK
     Dates: start: 20030825
  3. ALDACTONE [Concomitant]
     Active Substance: SPIRONOLACTONE
  4. FLOLAN [Suspect]
     Active Substance: EPOPROSTENOL SODIUM
     Dosage: UNK
     Dates: start: 20030825
  5. FLOLAN [Suspect]
     Active Substance: EPOPROSTENOL SODIUM
     Dosage: UNK
     Dates: start: 20030825
  6. FLOLAN [Suspect]
     Active Substance: EPOPROSTENOL SODIUM
     Dosage: 50NG/KG/MIN
     Dates: start: 20030918
  7. FLOLAN [Suspect]
     Active Substance: EPOPROSTENOL SODIUM
     Dosage: 50 NG/KG/MIN CONTINUOUSLY; 75,000 NG/ML; PUMP RATE: 79 ML/DAY; VIAL STRENGTH: 1.5 MG
     Dates: start: 20030918
  8. FLOLAN [Suspect]
     Active Substance: EPOPROSTENOL SODIUM
     Dosage: 50 NG/KG/MIN (CONCENTRATION 75,000 NG/ML, PUMP RATE 79 ML/DAY, VIAL STRENGTH 1.5 MG/ML) CO
     Route: 042
  9. FLOLAN [Suspect]
     Active Substance: EPOPROSTENOL SODIUM
     Indication: PRODUCT USED FOR UNKNOWN INDICATION
     Route: 042
  10. FLOLAN [Suspect]
     Active Substance: EPOPROSTENOL SODIUM
     Dosage: UNK
     Dates: start: 20030825
  11. FLOLAN [Suspect]
     Active Substance: EPOPROSTENOL SODIUM
     Dosage: 50 NG/KG/MIN CONTINUOUS
     Route: 042
  12. COUMADIN [Concomitant]
     Active Substance: WARFARIN SODIUM
  13. FLOLAN [Suspect]
     Active Substance: EPOPROSTENOL SODIUM
     Dosage: 50 NG/KG/MIN, CO
     Dates: start: 20030918
  14. REVATIO [Concomitant]
     Active Substance: SILDENAFIL CITRATE
  15. FLOLAN [Suspect]
     Active Substance: EPOPROSTENOL SODIUM
     Dosage: UNK, CO
     Route: 042
     Dates: start: 20030918
  16. FLOLAN [Suspect]
     Active Substance: EPOPROSTENOL SODIUM
     Dosage: 50 NG/KG/MIN CONTINOUS
     Dates: start: 20030918
  17. FLOLAN [Suspect]
     Active Substance: EPOPROSTENOL SODIUM
     Dosage: 50 NG/KG/MIN CONTINUOUSLY; 75,000 NG/ML; PUMP RATE: 79 ML/DAY; VIAL STRENGTH: 1.5 MG
     Dates: start: 20030919
  18. FLOLAN [Suspect]
     Active Substance: EPOPROSTENOL SODIUM
     Dosage: 50 NG/KG/MIN CONTINOUS
     Dates: start: 20030918

REACTIONS (30)
  - Fluid overload [Unknown]
  - Dizziness [Unknown]
  - Musculoskeletal pain [Unknown]
  - Application site pruritus [Not Recovered/Not Resolved]
  - Anaemia [Unknown]
  - Dermatitis contact [Not Recovered/Not Resolved]
  - Pallor [Unknown]
  - Rash [Unknown]
  - Cardiac ablation [Unknown]
  - Diarrhoea [Unknown]
  - Chest pain [Unknown]
  - Chest discomfort [Unknown]
  - Device malfunction [Unknown]
  - Complication associated with device [Unknown]
  - Drug dose omission [Unknown]
  - Thrombosis in device [Unknown]
  - Cardiac pacemaker insertion [Unknown]
  - Syncope [Unknown]
  - Mobility decreased [Unknown]
  - Hospitalisation [Unknown]
  - Transfusion [Unknown]
  - Heart rate abnormal [Unknown]
  - Application site erythema [Not Recovered/Not Resolved]
  - Oropharyngeal pain [Not Recovered/Not Resolved]
  - Hyperhidrosis [Unknown]
  - Seasonal allergy [Unknown]
  - Dysphagia [Unknown]
  - Death [Fatal]
  - Dyspnoea [Unknown]
  - Therapy cessation [Unknown]

NARRATIVE: CASE EVENT DATE: 20120530
